FAERS Safety Report 9344558 (Version 1)
Quarter: 2013Q2

REPORT INFORMATION
  Report Type: Spontaneous
  Country: US (occurrence: None)
  Receive Date: 20130611
  Receipt Date: 20130611
  Transmission Date: 20140414
  Serious: No
  Sender: FDA-Public Use
  Company Number: None

PATIENT
  Age: 65 Year
  Sex: Male

DRUGS (1)
  1. INLYTA [Suspect]
     Route: 048
     Dates: start: 20130215

REACTIONS (4)
  - Dysgeusia [None]
  - Hypophagia [None]
  - Weight decreased [None]
  - Diarrhoea [None]
